FAERS Safety Report 5042943-4 (Version None)
Quarter: 2006Q2

REPORT INFORMATION
  Report Type: 
  Country: None (occurrence: None)
  Receive Date: 20060627
  Receipt Date: 20060609
  Transmission Date: 20061013
  Serious: Yes (Hospitalization)
  Sender: FDA-Public Use
  Company Number: SE200604002989

PATIENT
  Age: 23 Year
  Sex: Female

DRUGS (2)
  1. ZYPREXA [Suspect]
     Indication: PSYCHOTIC DISORDER
     Dosage: ORAL
     Route: 048
  2. EFEXOR /USA/(VENLAFAXINE HYDROCHLORIDE) [Concomitant]

REACTIONS (2)
  - CHOLELITHIASIS [None]
  - MUSCLE TWITCHING [None]
